FAERS Safety Report 5458485-8 (Version None)
Quarter: 2007Q3

REPORT INFORMATION
  Report Type: 
  Country: None (occurrence: None)
  Receive Date: 20070919
  Receipt Date: 20070403
  Transmission Date: 20080115
  Serious: No
  Sender: FDA-Public Use
  Company Number: US-ASTRAZENECA-2007UW06638

PATIENT
  Age: 25 Year
  Sex: Female
  Weight: 127 kg

DRUGS (9)
  1. SEROQUEL [Suspect]
     Indication: ANXIETY
     Dosage: 25-50 MG
     Route: 048
  2. SEROQUEL [Suspect]
     Indication: SLEEP DISORDER
     Dosage: 25-50 MG
     Route: 048
  3. SEROQUEL [Suspect]
     Dosage: 25-50 MG
     Route: 048
  4. SEROQUEL [Suspect]
     Dosage: 25-50 MG
     Route: 048
  5. SEROQUEL [Suspect]
     Dosage: 800-1600 MG
     Route: 048
     Dates: end: 20061101
  6. SEROQUEL [Suspect]
     Dosage: 800-1600 MG
     Route: 048
     Dates: end: 20061101
  7. CELEXA [Concomitant]
  8. LEXAPRO [Concomitant]
  9. NAPROXEN [Concomitant]

REACTIONS (11)
  - ACCIDENTAL OVERDOSE [None]
  - CHEST PAIN [None]
  - DECREASED APPETITE [None]
  - ELECTROCARDIOGRAM ABNORMAL [None]
  - HEADACHE [None]
  - HEART RATE DECREASED [None]
  - INSOMNIA [None]
  - PAIN [None]
  - SOMNOLENCE [None]
  - TREMOR [None]
  - WEIGHT INCREASED [None]
